FAERS Safety Report 13742641 (Version 1)
Quarter: 2017Q3

REPORT INFORMATION
  Report Type: Spontaneous
  Country: FR (occurrence: FR)
  Receive Date: 20170711
  Receipt Date: 20170711
  Transmission Date: 20171127
  Serious: Yes (Hospitalization)
  Sender: FDA-Public Use
  Company Number: PHHY2017FR098900

PATIENT
  Age: 60 Year
  Sex: Male

DRUGS (3)
  1. DOLIPRANE [Concomitant]
     Active Substance: ACETAMINOPHEN
     Indication: PAIN
     Dosage: UNK
     Route: 065
     Dates: start: 20121208
  2. VOLTARENE [Suspect]
     Active Substance: DICLOFENAC SODIUM
     Indication: OSTEOARTHRITIS
     Dosage: UNK UNK, BID
     Route: 048
     Dates: start: 20121208, end: 20121217
  3. COVERSYL [Suspect]
     Active Substance: PERINDOPRIL
     Indication: HYPERTENSION
     Dosage: UNK
     Route: 048
     Dates: end: 20121217

REACTIONS (2)
  - Eosinophilia [Recovered/Resolved]
  - Rash maculo-papular [Recovered/Resolved]

NARRATIVE: CASE EVENT DATE: 20121217
